FAERS Safety Report 5333420-1 (Version None)
Quarter: 2007Q2

REPORT INFORMATION
  Report Type: 
  Country: None (occurrence: None)
  Receive Date: 20070522
  Receipt Date: 20070522
  Transmission Date: 20071010
  Serious: Yes (Hospitalization)
  Sender: FDA-Public Use
  Company Number: None

PATIENT
  Sex: Female
  Weight: 57 kg

DRUGS (1)
  1. TAXOL [Suspect]
     Indication: NEOPLASM MALIGNANT
     Dosage: 80 MG/M2 = 129 MG IV
     Route: 042
     Dates: start: 20070504, end: 20070504

REACTIONS (3)
  - CHEST DISCOMFORT [None]
  - DIZZINESS [None]
  - INFUSION RELATED REACTION [None]
